FAERS Safety Report 9229653 (Version 3)
Quarter: 2013Q2

REPORT INFORMATION
  Report Type: Spontaneous
  Country: US (occurrence: US)
  Receive Date: 20130415
  Receipt Date: 20130426
  Transmission Date: 20140414
  Serious: Yes (Hospitalization, Other)
  Sender: FDA-Public Use
  Company Number: US-AMGEN-USASP2013025378

PATIENT
  Age: 80 Year
  Sex: Female
  Weight: 51.7 kg

DRUGS (4)
  1. NEULASTA [Suspect]
     Indication: NEUTROPENIA
     Dosage: 6 MG, 24 HR POST CHEMO AS NEEDED
     Route: 058
     Dates: start: 20130404
  2. METHOTREXATE [Concomitant]
     Indication: BREAST CANCER
     Dosage: 40 MG, 21 DAY CYCLE
     Route: 042
     Dates: start: 20130313
  3. 5-FU                               /00098801/ [Concomitant]
     Indication: BREAST CANCER
     Dosage: 700 MG, 21 DAY CYCLE
     Route: 042
     Dates: start: 20130313
  4. CYTOXAN [Concomitant]
     Indication: BREAST CANCER
     Dosage: 700 MG, 21 DAY CYCLE
     Route: 042
     Dates: start: 20130313

REACTIONS (10)
  - Angioedema [Recovering/Resolving]
  - Oedema mouth [Recovering/Resolving]
  - Eye swelling [Recovering/Resolving]
  - Swollen tongue [Recovered/Resolved]
  - Skin lesion [Recovering/Resolving]
  - Pruritus [Recovering/Resolving]
  - Rash [Recovering/Resolving]
  - Urticaria [Recovering/Resolving]
  - Hypersensitivity [Recovering/Resolving]
  - Erythema [Recovering/Resolving]
